FAERS Safety Report 15314096 (Version 16)
Quarter: 2023Q1

REPORT INFORMATION
  Report Type: Spontaneous
  Country: CA (occurrence: CA)
  Receive Date: 20180824
  Receipt Date: 20230317
  Transmission Date: 20230417
  Serious: Yes (Other)
  Sender: FDA-Public Use
  Company Number: CA-CELLTRION INC.-2018CA017426

PATIENT

DRUGS (43)
  1. INFLECTRA [Suspect]
     Active Substance: INFLIXIMAB-DYYB
     Indication: Colitis ulcerative
     Dosage: 350 MG, 0, 2, 6, THEN EVERY 8 WEEKS
     Route: 042
     Dates: start: 20170616
  2. INFLECTRA [Suspect]
     Active Substance: INFLIXIMAB-DYYB
     Dosage: 350 MG, 0, 2, 6, THEN EVERY 8 WEEKS
     Route: 042
     Dates: start: 20170628
  3. INFLECTRA [Suspect]
     Active Substance: INFLIXIMAB-DYYB
     Dosage: 350 MG, 0, 2, 6, THEN EVERY 8 WEEKS
     Route: 042
     Dates: start: 20170725
  4. INFLECTRA [Suspect]
     Active Substance: INFLIXIMAB-DYYB
     Dosage: 350 MG, 0, 2, 6, THEN EVERY 8 WEEKS
     Route: 042
     Dates: start: 20170919
  5. INFLECTRA [Suspect]
     Active Substance: INFLIXIMAB-DYYB
     Dosage: 350 MG, 0, 2, 6, THEN EVERY 8 WEEKS
     Route: 042
     Dates: start: 20171114
  6. INFLECTRA [Suspect]
     Active Substance: INFLIXIMAB-DYYB
     Dosage: 350 MG, 0, 2, 6, THEN EVERY 8 WEEKS
     Route: 042
     Dates: start: 20171114
  7. INFLECTRA [Suspect]
     Active Substance: INFLIXIMAB-DYYB
     Dosage: 350 MG, 0, 2, 6 WEEKS
     Route: 042
     Dates: start: 20180109
  8. INFLECTRA [Suspect]
     Active Substance: INFLIXIMAB-DYYB
     Dosage: 350 MG, EVERY 6 WEEKS
     Route: 042
     Dates: start: 20180220
  9. INFLECTRA [Suspect]
     Active Substance: INFLIXIMAB-DYYB
     Dosage: 350 MG, EVERY 6 WEEKS
     Route: 042
     Dates: start: 20180403
  10. INFLECTRA [Suspect]
     Active Substance: INFLIXIMAB-DYYB
     Dosage: 350 MG, EVERY 6 WEEKS
     Route: 042
     Dates: start: 20180515
  11. INFLECTRA [Suspect]
     Active Substance: INFLIXIMAB-DYYB
     Dosage: 350 MG, EVERY 6 WEEKS
     Route: 042
     Dates: start: 20181211
  12. INFLECTRA [Suspect]
     Active Substance: INFLIXIMAB-DYYB
     Dosage: 350 MG, EVERY 6 WEEKS
     Route: 042
     Dates: start: 20190122
  13. INFLECTRA [Suspect]
     Active Substance: INFLIXIMAB-DYYB
     Dosage: 350 MG, EVERY 6 WEEKS
     Route: 042
     Dates: start: 20190122
  14. INFLECTRA [Suspect]
     Active Substance: INFLIXIMAB-DYYB
     Dosage: 350 MG, EVERY 6 WEEKS
     Route: 042
     Dates: start: 20190305
  15. INFLECTRA [Suspect]
     Active Substance: INFLIXIMAB-DYYB
     Dosage: 350 MG, EVERY 6 WEEKS
     Route: 042
     Dates: start: 20190416
  16. INFLECTRA [Suspect]
     Active Substance: INFLIXIMAB-DYYB
     Dosage: 350 MG EVERY 8 WEEKS
     Route: 042
     Dates: start: 20190611
  17. INFLECTRA [Suspect]
     Active Substance: INFLIXIMAB-DYYB
     Dosage: 350 MG EVERY 8 WEEKS
     Route: 042
     Dates: start: 20190806
  18. INFLECTRA [Suspect]
     Active Substance: INFLIXIMAB-DYYB
     Dosage: 350 MG EVERY 8 WEEKS
     Route: 042
     Dates: start: 20191125
  19. INFLECTRA [Suspect]
     Active Substance: INFLIXIMAB-DYYB
     Dosage: 400 MG, (7.5MG/KG) EVERY 6 WEEKS
     Route: 042
     Dates: start: 20200107
  20. INFLECTRA [Suspect]
     Active Substance: INFLIXIMAB-DYYB
     Dosage: 400 MG, (7.5MG/KG) EVERY 6 WEEKS
     Route: 042
     Dates: start: 20200217
  21. INFLECTRA [Suspect]
     Active Substance: INFLIXIMAB-DYYB
     Dosage: 400 MG, (7.5MG/KG) EVERY 6 WEEKS
     Route: 042
     Dates: start: 20200401
  22. INFLECTRA [Suspect]
     Active Substance: INFLIXIMAB-DYYB
     Dosage: 400 MG, (7.5MG/KG) EVERY 6 WEEKS
     Route: 042
     Dates: start: 20200515
  23. INFLECTRA [Suspect]
     Active Substance: INFLIXIMAB-DYYB
     Dosage: 400 MG, (7.5MG/KG) EVERY 6 WEEKS
     Route: 042
     Dates: start: 20200626
  24. INFLECTRA [Suspect]
     Active Substance: INFLIXIMAB-DYYB
     Dosage: 400 MG, (7.5MG/KG) EVERY 6 WEEKS
     Route: 042
     Dates: start: 20200806
  25. INFLECTRA [Suspect]
     Active Substance: INFLIXIMAB-DYYB
     Dosage: 400 MG, (7.5MG/KG) EVERY 6 WEEKS
     Route: 042
     Dates: start: 20200917
  26. INFLECTRA [Suspect]
     Active Substance: INFLIXIMAB-DYYB
     Dosage: 400 MG, (7.5MG/KG) EVERY 6 WEEKS
     Route: 042
     Dates: start: 20201028
  27. INFLECTRA [Suspect]
     Active Substance: INFLIXIMAB-DYYB
     Dosage: 400 MG, (7.5MG/KG) EVERY 6 WEEKS
     Route: 042
     Dates: start: 20201209
  28. INFLECTRA [Suspect]
     Active Substance: INFLIXIMAB-DYYB
     Dosage: 400 MG, (7.5MG/KG) EVERY 6 WEEKS
     Route: 042
     Dates: start: 20210128
  29. INFLECTRA [Suspect]
     Active Substance: INFLIXIMAB-DYYB
     Dosage: 400 MG, (7.5MG/KG) EVERY 6 WEEKS
     Route: 042
     Dates: start: 20210311
  30. INFLECTRA [Suspect]
     Active Substance: INFLIXIMAB-DYYB
     Dosage: 400 MG, (7.5MG/KG) EVERY 6 WEEKS
     Route: 042
     Dates: start: 20210422
  31. INFLECTRA [Suspect]
     Active Substance: INFLIXIMAB-DYYB
     Dosage: 500 MG, EVERY 6 WEEKS
     Route: 042
     Dates: start: 20211118
  32. INFLECTRA [Suspect]
     Active Substance: INFLIXIMAB-DYYB
     Dosage: 500 MG, EVERY 6 WEEKS
     Route: 042
     Dates: start: 20211230
  33. INFLECTRA [Suspect]
     Active Substance: INFLIXIMAB-DYYB
     Dosage: 500 MG, EVERY 6 WEEKS
     Route: 042
     Dates: start: 20220221
  34. INFLECTRA [Suspect]
     Active Substance: INFLIXIMAB-DYYB
     Dosage: 500 MG, EVERY 6 WEEKS
     Route: 042
     Dates: start: 20220404
  35. INFLECTRA [Suspect]
     Active Substance: INFLIXIMAB-DYYB
     Dosage: 500 MG, EVERY 6 WEEKS
     Route: 042
     Dates: start: 20220516
  36. INFLECTRA [Suspect]
     Active Substance: INFLIXIMAB-DYYB
     Dosage: 500 MG, EVERY 6 WEEKS
     Route: 042
     Dates: start: 20221215
  37. INFLECTRA [Suspect]
     Active Substance: INFLIXIMAB-DYYB
     Dosage: 500 MG, EVERY 6 WEEKS
     Route: 042
     Dates: start: 20230126
  38. INFLECTRA [Suspect]
     Active Substance: INFLIXIMAB-DYYB
     Dosage: 500 MG, EVERY 6 WEEKS
     Route: 042
     Dates: start: 20230309
  39. CORTISONE [Concomitant]
     Active Substance: CORTISONE
     Dosage: 1 DF , DOSING INFORMATION FOR CORTISONE UNKNOWN
     Route: 065
  40. CORTISONE [Concomitant]
     Active Substance: CORTISONE
     Dosage: 1 DF
     Route: 061
  41. HYDROCORTISONE [Concomitant]
     Active Substance: HYDROCORTISONE
     Dosage: 1 DF
     Route: 061
  42. PURINETHOL [Concomitant]
     Active Substance: MERCAPTOPURINE
     Dosage: 1 DF ,DOSING INFORMATION FOR PURINETHOL UNKNOWN
     Route: 065
  43. REACTIN [DICLOFENAC SODIUM] [Concomitant]
     Dosage: 1 DF
     Route: 065

REACTIONS (28)
  - Cellulitis [Recovered/Resolved]
  - Nephrolithiasis [Recovered/Resolved]
  - Drug ineffective [Unknown]
  - Off label use [Unknown]
  - Off label use [Unknown]
  - Intentional product use issue [Unknown]
  - Inappropriate schedule of product administration [Unknown]
  - Keratitis [Recovered/Resolved]
  - Influenza [Recovered/Resolved]
  - Eye pain [Recovered/Resolved]
  - Eye irritation [Recovered/Resolved]
  - Weight increased [Unknown]
  - Sciatica [Unknown]
  - Back pain [Not Recovered/Not Resolved]
  - Rash [Recovering/Resolving]
  - Rash pruritic [Not Recovered/Not Resolved]
  - Skin lesion [Not Recovered/Not Resolved]
  - Scab [Not Recovered/Not Resolved]
  - Pityriasis rosea [Not Recovered/Not Resolved]
  - Erythema [Recovering/Resolving]
  - Urticaria [Recovering/Resolving]
  - Guttate psoriasis [Recovering/Resolving]
  - Hypoaesthesia [Unknown]
  - Blood urine present [Unknown]
  - Pain [Unknown]
  - Blood pressure fluctuation [Unknown]
  - Blood pressure increased [Unknown]
  - Herpes zoster [Recovered/Resolved]

NARRATIVE: CASE EVENT DATE: 20180101
